FAERS Safety Report 21149768 (Version 1)
Quarter: 2022Q3

REPORT INFORMATION
  Report Type: Spontaneous
  Country: US (occurrence: None)
  Receive Date: 20220729
  Receipt Date: 20220729
  Transmission Date: 20221027
  Serious: Yes (Hospitalization)
  Sender: FDA-Public Use
  Company Number: None

PATIENT
  Age: 46 Year
  Sex: Male
  Weight: 83.25 kg

DRUGS (1)
  1. CITROMA [Suspect]
     Active Substance: MAGNESIUM CITRATE
     Indication: Constipation
     Dosage: FREQUENCY : AS NEEDED;?
     Route: 048
     Dates: start: 20220714, end: 20220714

REACTIONS (1)
  - Malaise [None]

NARRATIVE: CASE EVENT DATE: 20220714
